FAERS Safety Report 19016166 (Version 1)
Quarter: 2021Q1

REPORT INFORMATION
  Report Type: Spontaneous
  Country: US (occurrence: US)
  Receive Date: 20210317
  Receipt Date: 20210317
  Transmission Date: 20210420
  Serious: No
  Sender: FDA-Public Use
  Company Number: US-GLOBAL BLOOD THERAPEUTICS INC-US-GBT-20-04265

PATIENT
  Age: 60 Year
  Sex: Female

DRUGS (2)
  1. AMLODIPINE [Concomitant]
     Active Substance: AMLODIPINE BESYLATE
     Indication: HYPERTENSION
  2. OXBRYTA [Suspect]
     Active Substance: VOXELOTOR
     Indication: SICKLE CELL ANAEMIA
     Route: 048
     Dates: start: 20201218

REACTIONS (14)
  - Peripheral swelling [Unknown]
  - Blood pressure decreased [Unknown]
  - Paraesthesia [Unknown]
  - Herpes zoster [Unknown]
  - Product dose omission issue [Unknown]
  - Adverse event [Unknown]
  - Arthralgia [Unknown]
  - Nausea [Recovering/Resolving]
  - Sickle cell anaemia with crisis [Unknown]
  - Blister [Unknown]
  - Pain in extremity [Unknown]
  - Skin irritation [Unknown]
  - Haemoglobin decreased [Recovered/Resolved]
  - Rash [Unknown]

NARRATIVE: CASE EVENT DATE: 2020
